FAERS Safety Report 4924413-4 (Version None)
Quarter: 2006Q1

REPORT INFORMATION
  Report Type: 
  Country: None (occurrence: None)
  Receive Date: 20060227
  Receipt Date: 20060214
  Transmission Date: 20060701
  Serious: Yes (Death, Hospitalization)
  Sender: FDA-Public Use
  Company Number: US-ROCHE-436788

PATIENT
  Age: 66 Year
  Sex: Female
  Weight: 51.3 kg

DRUGS (2)
  1. PEGASYS [Suspect]
     Route: 058
     Dates: start: 20050906, end: 20060206
  2. RIBAVIRIN [Suspect]
     Route: 048
     Dates: start: 20050906, end: 20060206

REACTIONS (3)
  - CEREBRAL HAEMORRHAGE [None]
  - THERAPY NON-RESPONDER [None]
  - THROMBOTIC THROMBOCYTOPENIC PURPURA [None]
